FAERS Safety Report 26038201 (Version 1)
Quarter: 2025Q4

REPORT INFORMATION
  Report Type: Spontaneous
  Country: US (occurrence: US)
  Receive Date: 20251113
  Receipt Date: 20251113
  Transmission Date: 20260117
  Serious: Yes (Life-Threatening, Hospitalization, Other)
  Sender: UNICHEM
  Company Number: US-UNICHEM LABORATORIES LIMITED-UNI-2025-US-003715

PATIENT

DRUGS (3)
  1. AMLODIPINE [Suspect]
     Active Substance: AMLODIPINE BESYLATE
     Indication: Product used for unknown indication
     Dosage: 87 TABLETS OF 10 MG
     Route: 065
  2. HYDROCHLOROTHIAZIDE\LOSARTAN [Suspect]
     Active Substance: HYDROCHLOROTHIAZIDE\LOSARTAN
     Indication: Product used for unknown indication
     Dosage: UNK (90 TABLETS)
     Route: 065
  3. LEVOTHYROXINE [Suspect]
     Active Substance: LEVOTHYROXINE
     Indication: Product used for unknown indication
     Dosage: 20-30 TABLETS OF 175 MICROGRAM
     Route: 065

REACTIONS (2)
  - Hypotension [Unknown]
  - Intentional overdose [Unknown]
